FAERS Safety Report 9383797 (Version 2)
Quarter: 2013Q4

REPORT INFORMATION
  Report Type: Spontaneous
  Country: FR (occurrence: FR)
  Receive Date: 20130704
  Receipt Date: 20131030
  Transmission Date: 20140711
  Serious: Yes (Hospitalization)
  Sender: FDA-Public Use
  Company Number: FR-BRISTOL-MYERS SQUIBB COMPANY-19072354

PATIENT
  Age: 65 Year
  Sex: Male
  Weight: 95 kg

DRUGS (3)
  1. METFORMIN HCL [Suspect]
     Route: 048
  2. JANUVIA [Suspect]
     Dosage: TABLET
     Route: 048
     Dates: end: 20130502
  3. DAONIL [Suspect]
     Route: 048

REACTIONS (1)
  - Pemphigoid [Recovered/Resolved with Sequelae]
